FAERS Safety Report 9186130 (Version 2)
Quarter: 2013Q2

REPORT INFORMATION
  Report Type: Spontaneous
  Country: US (occurrence: US)
  Receive Date: 20130325
  Receipt Date: 20130425
  Transmission Date: 20140414
  Serious: Yes (Hospitalization)
  Sender: FDA-Public Use
  Company Number: US-GILEAD-2013-0072146

PATIENT
  Sex: Female

DRUGS (3)
  1. LETAIRIS [Suspect]
     Indication: PRODUCT USED FOR UNKNOWN INDICATION
     Dates: start: 20130131
  2. LETAIRIS [Suspect]
     Dates: start: 20130130
  3. VENTAVIS [Concomitant]

REACTIONS (2)
  - Pain [Unknown]
  - Mobility decreased [Unknown]
